FAERS Safety Report 5469380-2 (Version None)
Quarter: 2007Q3

REPORT INFORMATION
  Report Type: 
  Country: None (occurrence: None)
  Receive Date: 20070924
  Receipt Date: 20070914
  Transmission Date: 20080115
  Serious: Yes (Hospitalization)
  Sender: FDA-Public Use
  Company Number: TPG2007A00615

PATIENT
  Age: 69 Year
  Sex: Male

DRUGS (7)
  1. LANSOPRAZOLE [Suspect]
     Indication: REFLUX OESOPHAGITIS
     Dosage: 30 MG PER ORAL
     Route: 048
     Dates: start: 20021031, end: 20070726
  2. HAWTHORN(CRATAEGUS LAEVIGATA) [Concomitant]
  3. ALLOPURINOL [Concomitant]
  4. GODAMED(PAYNOCIL) [Concomitant]
  5. TALCID(HYDROTALCITE) [Concomitant]
  6. PASPERTIN(METOCLOPRAMIDE HYDROCHLORIDE) [Concomitant]
  7. TAMSULOSIN HCL [Concomitant]

REACTIONS (18)
  - ARRHYTHMIA [None]
  - BILE DUCT STENOSIS [None]
  - BLOOD PRESSURE DECREASED [None]
  - CHOLELITHIASIS [None]
  - DILATATION ATRIAL [None]
  - DIVERTICULUM INTESTINAL [None]
  - EJECTION FRACTION DECREASED [None]
  - GENERAL PHYSICAL HEALTH DETERIORATION [None]
  - HEPATIC STEATOSIS [None]
  - HYDROCHOLECYSTIS [None]
  - PANCREATIC CARCINOMA [None]
  - PRESYNCOPE [None]
  - PROCEDURAL COMPLICATION [None]
  - RENAL CYST [None]
  - TACHYCARDIA [None]
  - VENTRICULAR EXTRASYSTOLES [None]
  - VENTRICULAR TACHYCARDIA [None]
  - WEIGHT DECREASED [None]
